FAERS Safety Report 17412613 (Version 1)
Quarter: 2020Q1

REPORT INFORMATION
  Report Type: Spontaneous
  Country: US (occurrence: US)
  Receive Date: 20200129
  Receipt Date: 20200129
  Transmission Date: 20200409
  Serious: Yes (Other)
  Sender: FDA-Public Use
  Company Number: None

PATIENT
  Age: 64 Year
  Sex: Male

DRUGS (1)
  1. HUMIRA [Suspect]
     Active Substance: ADALIMUMAB
     Indication: ANKYLOSING SPONDYLITIS
     Dosage: ?          OTHER DOSE:40MG/0.4ML;OTHER FREQUENCY:EVERY 14 DAYS;?
     Route: 058
     Dates: start: 20190519

REACTIONS (2)
  - Hip arthroplasty [None]
  - Therapy cessation [None]
